FAERS Safety Report 9648941 (Version 1)
Quarter: 2013Q4

REPORT INFORMATION
  Report Type: Spontaneous
  Country: US (occurrence: None)
  Receive Date: 20131025
  Receipt Date: 20131025
  Transmission Date: 20140711
  Serious: Yes (Other)
  Sender: FDA-Public Use
  Company Number: None

PATIENT
  Age: 38 Year
  Sex: Male
  Weight: 93.9 kg

DRUGS (1)
  1. ECIG [Suspect]
     Indication: SMOKING CESSATION THERAPY
     Dosage: AUGUST 5 - SEPT. 5, NA, Q1/2-1HR., ORAL/INHALATION

REACTIONS (10)
  - Dizziness [None]
  - Oropharyngeal pain [None]
  - Chest pain [None]
  - Palpitations [None]
  - Musculoskeletal chest pain [None]
  - Disorientation [None]
  - Headache [None]
  - Muscle spasms [None]
  - Pain [None]
  - Dyspnoea [None]
